FAERS Safety Report 25201743 (Version 1)
Quarter: 2025Q2

REPORT INFORMATION
  Report Type: Report from Study
  Country: BR (occurrence: BR)
  Receive Date: 20250416
  Receipt Date: 20250416
  Transmission Date: 20250716
  Serious: Yes (Other)
  Sender: TAKEDA
  Company Number: BR-TAKEDA-2025TUS036619

PATIENT
  Age: 45 Year
  Sex: Female

DRUGS (2)
  1. VEDOLIZUMAB [Suspect]
     Active Substance: VEDOLIZUMAB
     Indication: Colitis ulcerative
  2. VEDOLIZUMAB [Suspect]
     Active Substance: VEDOLIZUMAB
     Dosage: 300 MILLIGRAM, Q4WEEKS

REACTIONS (7)
  - Diabetes mellitus [Unknown]
  - Biliary dilatation [Unknown]
  - Inappropriate schedule of product administration [Not Recovered/Not Resolved]
  - Vomiting [Recovered/Resolved]
  - Gallbladder mass [Unknown]
  - Abdominal pain upper [Recovered/Resolved]
  - Nausea [Unknown]

NARRATIVE: CASE EVENT DATE: 20250316
